FAERS Safety Report 14226138 (Version 1)
Quarter: 2017Q4

REPORT INFORMATION
  Report Type: Spontaneous
  Country: JP (occurrence: JP)
  Receive Date: 20171127
  Receipt Date: 20171127
  Transmission Date: 20180321
  Serious: Yes (Death, Other)
  Sender: FDA-Public Use
  Company Number: JP-BAYER-2017-221102

PATIENT
  Age: 71 Year
  Sex: Male

DRUGS (1)
  1. REGORAFENIB [Suspect]
     Active Substance: REGORAFENIB
     Indication: COLON CANCER METASTATIC
     Dosage: 50% DOSE REDUCTION
     Route: 048
     Dates: start: 201606

REACTIONS (7)
  - General physical health deterioration [Recovered/Resolved]
  - Retinal haemorrhage [Recovered/Resolved]
  - Dysphonia [Recovered/Resolved]
  - Haematochezia [Recovered/Resolved]
  - Gastrointestinal haemorrhage [Recovered/Resolved]
  - Thrombocytopenia [Recovered/Resolved]
  - Vitreous floaters [Recovered/Resolved]
